FAERS Safety Report 6269929-6 (Version None)
Quarter: 2009Q3

REPORT INFORMATION
  Report Type: 
  Country: None (occurrence: None)
  Receive Date: 20090716
  Receipt Date: 20071213
  Transmission Date: 20100115
  Serious: Yes (Hospitalization, Other)
  Sender: FDA-Public Use
  Company Number: US-ASTRAZENECA-2006UW21263

PATIENT
  Age: 50 Year
  Sex: Female
  Weight: 88 kg

DRUGS (33)
  1. SEROQUEL [Suspect]
     Indication: INSOMNIA
     Dosage: 200 MG - 800 MG
     Route: 048
     Dates: start: 20020601, end: 20060113
  2. SEROQUEL [Suspect]
     Indication: POST-TRAUMATIC STRESS DISORDER
     Dosage: 200 MG - 800 MG
     Route: 048
     Dates: start: 20020601, end: 20060113
  3. SEROQUEL [Suspect]
     Indication: MAJOR DEPRESSION
     Dosage: 200 MG - 800 MG
     Route: 048
     Dates: start: 20020601, end: 20060113
  4. SEROQUEL [Suspect]
     Dosage: 200 - 800 MG
     Route: 048
     Dates: start: 20020625
  5. SEROQUEL [Suspect]
     Dosage: 200 - 800 MG
     Route: 048
     Dates: start: 20020625
  6. SEROQUEL [Suspect]
     Dosage: 200 - 800 MG
     Route: 048
     Dates: start: 20020625
  7. METHADONE (PRESCRIBED) [Concomitant]
     Route: 048
     Dates: start: 20060101
  8. GLUCOPHAGE [Concomitant]
     Dosage: 200 - 1000 MG
     Route: 048
  9. NEXIUM [Concomitant]
     Dosage: 40 - 160 MG
     Route: 048
  10. METOPROLOL TARTRATE [Concomitant]
     Dosage: 50 - 100 MG
     Route: 048
  11. MAVIK [Concomitant]
     Dosage: 2 - 10 MG
     Route: 048
  12. MAXZIDE [Concomitant]
     Route: 048
  13. NEURONTIN [Concomitant]
     Route: 048
  14. FLEXERIL [Concomitant]
     Dosage: 10 - 30 MG
     Route: 048
  15. TRICOR [Concomitant]
     Route: 048
  16. PRAVACHOL [Concomitant]
     Route: 048
  17. ADVAIR DISKUS 100/50 [Concomitant]
     Route: 065
  18. PROZAC [Concomitant]
     Dosage: 40 - 160 MG
     Route: 048
  19. EFFEXOR [Concomitant]
     Dosage: 150 - 225 MG
     Route: 048
  20. TRANXENE [Concomitant]
     Route: 048
  21. PRILOSEC [Concomitant]
     Route: 065
  22. METHYLPHENIDATE HCL [Concomitant]
     Route: 065
  23. LYRICA [Concomitant]
     Dosage: 75 - 150 MG
     Route: 065
  24. DIAZEPAM [Concomitant]
     Route: 048
  25. ALLOPURINOL [Concomitant]
     Route: 065
  26. ATROVENT [Concomitant]
     Route: 065
  27. PREDNISONE TAB [Concomitant]
     Dosage: 10 - 60 MG
     Route: 048
  28. NOVOLIN [Concomitant]
     Route: 058
  29. LASIX [Concomitant]
     Route: 048
  30. LISINOPRIL [Concomitant]
     Dosage: 10 - 40 MG
     Route: 065
  31. VASOTEC [Concomitant]
     Route: 065
  32. SYNTHROID [Concomitant]
     Route: 065
  33. CYMBALTA [Concomitant]
     Route: 048

REACTIONS (21)
  - ARTHRALGIA [None]
  - ASTHMA [None]
  - CARDIAC FAILURE CONGESTIVE [None]
  - CHEST PAIN [None]
  - DIABETES MELLITUS [None]
  - DIABETIC FOOT [None]
  - DIABETIC NEUROPATHY [None]
  - DYSPNOEA [None]
  - EMPHYSEMA [None]
  - FALL [None]
  - FIBROMYALGIA [None]
  - GLYCOSURIA [None]
  - HYPERTENSION [None]
  - HYPOTHYROIDISM [None]
  - LUNG DISORDER [None]
  - NON-CARDIAC CHEST PAIN [None]
  - OSTEOARTHRITIS [None]
  - PAIN IN EXTREMITY [None]
  - PNEUMONIA [None]
  - PNEUMONIA ASPIRATION [None]
  - TYPE 1 DIABETES MELLITUS [None]
